FAERS Safety Report 21058148 (Version 1)
Quarter: 2022Q3

REPORT INFORMATION
  Report Type: Spontaneous
  Country: US (occurrence: None)
  Receive Date: 20220707
  Receipt Date: 20220707
  Transmission Date: 20221027
  Serious: No
  Sender: FDA-Public Use
  Company Number: None

PATIENT

DRUGS (2)
  1. LANTUS [Suspect]
     Active Substance: INSULIN GLARGINE
     Indication: Product used for unknown indication
  2. LEVEMIR [Suspect]
     Active Substance: INSULIN DETEMIR

REACTIONS (3)
  - Toe amputation [None]
  - Loss of consciousness [None]
  - Treatment noncompliance [None]
